FAERS Safety Report 7894433-9 (Version None)
Quarter: 2011Q4

REPORT INFORMATION
  Report Type: 
  Country: None (occurrence: None)
  Receive Date: 20111105
  Receipt Date: 20111026
  Transmission Date: 20120403
  Serious: Yes (Other)
  Sender: FDA-Public Use
  Company Number: FR-ASTRAZENECA-2011SE57416

PATIENT
  Sex: Female
  Weight: 51 kg

DRUGS (3)
  1. CRESTOR [Suspect]
     Indication: HYPERCHOLESTEROLAEMIA
     Route: 048
     Dates: start: 20110606, end: 20110907
  2. BISOPROLOL [Concomitant]
     Indication: HYPERTENSION
     Dates: start: 20031004
  3. RAMIPRIL [Concomitant]
     Indication: HYPERTENSION
     Dates: start: 20050207

REACTIONS (3)
  - PHOTOSENSITIVITY REACTION [None]
  - PHARYNGEAL OEDEMA [None]
  - FACE OEDEMA [None]
